FAERS Safety Report 10426351 (Version 1)
Quarter: 2014Q3

REPORT INFORMATION
  Report Type: Spontaneous
  Country: FR (occurrence: FR)
  Receive Date: 20140903
  Receipt Date: 20140903
  Transmission Date: 20150326
  Serious: Yes (Death, Hospitalization)
  Sender: FDA-Public Use
  Company Number: FR-JNJFOC-20140819326

PATIENT
  Age: 81 Year
  Sex: Female

DRUGS (15)
  1. NEURONTIN [Concomitant]
     Active Substance: GABAPENTIN
     Indication: NECK PAIN
     Dosage: 2 CAPSULES MORNING AND EVENING
     Route: 065
  2. PULMICORT TURBUHALER [Concomitant]
     Active Substance: BUDESONIDE
     Dosage: 1 MG/2 ML 1 AEROSOL MORNING AND EVENING
     Route: 065
  3. ALPRAZOLAM. [Concomitant]
     Active Substance: ALPRAZOLAM
     Route: 065
  4. DUROGESIC [Suspect]
     Active Substance: FENTANYL
     Indication: PAIN
     Route: 062
  5. STILNOX [Concomitant]
     Active Substance: ZOLPIDEM TARTRATE
     Dosage: HALF TABLET IN THE EVENING
     Route: 065
  6. GLYCEROL\PARAFFIN [Concomitant]
     Active Substance: GLYCERIN\PARAFFIN
     Dosage: CREAM 1 TUBE
     Route: 065
  7. LYRICA [Suspect]
     Active Substance: PREGABALIN
     Indication: HEADACHE
     Route: 065
  8. LEVOTHYROX [Concomitant]
     Active Substance: LEVOTHYROXINE
     Indication: THYROID DISORDER
     Dosage: MORNING
     Route: 048
  9. SOLUPRED [Concomitant]
     Active Substance: PREDNISOLONE
     Dosage: 60 MG MORNING, 40 MG MIDDAY
     Route: 065
  10. MOVICOL [Concomitant]
     Active Substance: POLYETHYLENE GLYCOL 3350\POTASSIUM CHLORIDE\SODIUM BICARBONATE\SODIUM CHLORIDE
     Dosage: 2 SACHETS IN THE MORNING IF NEEDED
     Route: 065
  11. NEURONTIN [Concomitant]
     Active Substance: GABAPENTIN
     Indication: HEADACHE
     Dosage: 2 CAPSULES MORNING AND EVENING
     Route: 065
  12. DUROGESIC [Suspect]
     Active Substance: FENTANYL
     Indication: PAIN
     Route: 062
  13. NEURONTIN [Concomitant]
     Active Substance: GABAPENTIN
     Indication: HEADACHE
     Dosage: 2 CAPSULES MORNING AND EVENING
     Route: 065
  14. KARDEGIC [Suspect]
     Active Substance: ASPIRIN LYSINE
     Indication: PRODUCT USED FOR UNKNOWN INDICATION
     Route: 065
  15. OXYNORM [Concomitant]
     Active Substance: OXYCODONE HYDROCHLORIDE
     Dosage: IF NEEDED
     Route: 065

REACTIONS (13)
  - Overdose [Recovered/Resolved]
  - Respiratory distress [Fatal]
  - Headache [Recovering/Resolving]
  - Somnolence [Unknown]
  - Oral fungal infection [Unknown]
  - Laryngeal dyspnoea [Unknown]
  - Dysphagia [Unknown]
  - Hypertension [Unknown]
  - Asthenia [Unknown]
  - Anxiety [Unknown]
  - Nausea [Unknown]
  - Haemoptysis [Unknown]
  - Heart rate increased [Unknown]

NARRATIVE: CASE EVENT DATE: 2013
